FAERS Safety Report 18565669 (Version 2)
Quarter: 2021Q1

REPORT INFORMATION
  Report Type: Report from Study
  Country: US (occurrence: US)
  Receive Date: 20201201
  Receipt Date: 20210130
  Transmission Date: 20210419
  Serious: Yes (Death)
  Sender: FDA-Public Use
  Company Number: NVSC2020US319683

PATIENT
  Age: 78 Year
  Sex: Male

DRUGS (2)
  1. ENTRESTO [Suspect]
     Active Substance: SACUBITRIL\VALSARTAN
     Indication: CARDIOMYOPATHY
     Dosage: 200 MG (97/103), BID
     Route: 048
     Dates: start: 201710
  2. RANEXA [Concomitant]
     Active Substance: RANOLAZINE
     Indication: ARTERIOSCLEROSIS
     Dosage: 500 MG, BID
     Route: 048

REACTIONS (3)
  - Death [Fatal]
  - Ejection fraction decreased [Unknown]
  - Product use in unapproved indication [Unknown]

NARRATIVE: CASE EVENT DATE: 20200219
